FAERS Safety Report 4322019-1 (Version None)
Quarter: 2004Q1

REPORT INFORMATION
  Report Type: 
  Country: None (occurrence: None)
  Receive Date: 20040319
  Receipt Date: 20040303
  Transmission Date: 20041129
  Serious: Yes (Other)
  Sender: FDA-Public Use
  Company Number: 2004-DE-01070GD(0)

PATIENT

DRUGS (5)
  1. CYCLOPHOSPHAMIDE [Suspect]
     Indication: PROPHYLAXIS
     Dosage: 120 MG/KG
  2. CYCLOPHOSPHAMIDE [Suspect]
     Indication: STEM CELL TRANSPLANT
     Dosage: 120 MG/KG
  3. METHOTREXATE [Suspect]
     Indication: PROPHYLAXIS AGAINST TRANSPLANT REJECTION
     Dosage: 10 MG/ME2
  4. GRANULOCYTE COLONY STIMULATING FACTOR (GRANULOCYTE COLONY STIMULATING [Concomitant]
  5. NYSTATIN [Concomitant]

REACTIONS (1)
  - ACUTE MYELOID LEUKAEMIA RECURRENT [None]
